FAERS Safety Report 7807175-2 (Version None)
Quarter: 2011Q4

REPORT INFORMATION
  Report Type: 
  Country: None (occurrence: None)
  Receive Date: 20111011
  Receipt Date: 20111003
  Transmission Date: 20120403
  Serious: Yes (Hospitalization, Other)
  Sender: FDA-Public Use
  Company Number: PHEH2011US05795

PATIENT
  Sex: Male

DRUGS (21)
  1. COUMADIN [Concomitant]
     Indication: ATRIAL FIBRILLATION
  2. PROPAFENONE HCL [Concomitant]
  3. MORPHINE [Concomitant]
  4. OXYCODONE HCL [Concomitant]
  5. REVLIMID [Suspect]
     Indication: MULTIPLE MYELOMA
     Dosage: 25 MG, QD
     Route: 048
     Dates: start: 20110502, end: 20110627
  6. DECADRON [Concomitant]
  7. VERAPAMIL [Concomitant]
  8. VESICARE [Concomitant]
  9. REVLIMID [Suspect]
     Dosage: 25 MG, QD
     Route: 048
     Dates: start: 20110801
  10. GLIPIZIDE [Concomitant]
  11. VITAMIN B COMPLEX CAP [Concomitant]
  12. DIOVAN [Concomitant]
  13. LOVAZA [Concomitant]
  14. VITAMIN D [Concomitant]
  15. TRAMADOL HCL [Concomitant]
  16. CORDARONE [Concomitant]
  17. TAMSULOSIN HCL [Concomitant]
  18. STOOL SOFTENER [Concomitant]
  19. RANITIN [Concomitant]
  20. INSULIN [Concomitant]
  21. ZOMETA [Suspect]
     Indication: MULTIPLE MYELOMA
     Dosage: 4 MG
     Route: 042
     Dates: start: 20090318, end: 20110531

REACTIONS (16)
  - JOINT SWELLING [None]
  - SYNOVIAL CYST [None]
  - ATRIOVENTRICULAR BLOCK [None]
  - RED BLOOD CELL COUNT DECREASED [None]
  - RENAL FAILURE [None]
  - PAIN [None]
  - HAEMOGLOBIN DECREASED [None]
  - THROMBOCYTOPENIA [None]
  - PULMONARY EMBOLISM [None]
  - ARTHRALGIA [None]
  - WHITE BLOOD CELL COUNT DECREASED [None]
  - OSTEOARTHRITIS [None]
  - NEUTROPENIA [None]
  - ATRIAL FIBRILLATION [None]
  - ANAEMIA [None]
  - CHEST PAIN [None]
